FAERS Safety Report 11946454 (Version 1)
Quarter: 2016Q1

REPORT INFORMATION
  Report Type: Spontaneous
  Country: US (occurrence: US)
  Receive Date: 20160125
  Receipt Date: 20160125
  Transmission Date: 20160526
  Serious: No
  Sender: FDA-Public Use
  Company Number: US-JNJFOC-20150603988

PATIENT
  Age: 60 Year
  Sex: Female
  Weight: 58.97 kg

DRUGS (7)
  1. WOMENS ROGAINE UNSCENTED [Suspect]
     Active Substance: MINOXIDIL
     Route: 061
  2. WOMENS ROGAINE UNSCENTED [Suspect]
     Active Substance: MINOXIDIL
     Indication: ALOPECIA
     Dosage: 1/2 CAP FULL,NIGHTLY
     Route: 061
  3. BIOTIN [Concomitant]
     Active Substance: BIOTIN
     Indication: ROUTINE HEALTH MAINTENANCE
     Dosage: DAILY, TAKING SINCE YEARS
     Route: 065
  4. CALCIUM [Concomitant]
     Active Substance: CALCIUM
     Indication: ROUTINE HEALTH MAINTENANCE
     Dosage: DAILY, TAKING SINCE YEARS
     Route: 065
  5. MULTIVITAMINES [Concomitant]
     Active Substance: VITAMINS
     Indication: ROUTINE HEALTH MAINTENANCE
     Route: 065
  6. FISH OIL [Concomitant]
     Active Substance: FISH OIL
     Indication: ROUTINE HEALTH MAINTENANCE
     Dosage: DAILY, TAKING SINCE YEARS
     Route: 065
  7. VITAMIN C [Concomitant]
     Active Substance: ASCORBIC ACID
     Indication: ROUTINE HEALTH MAINTENANCE
     Dosage: DAILY
     Route: 065

REACTIONS (1)
  - Hair texture abnormal [Not Recovered/Not Resolved]
